FAERS Safety Report 6470770-X (Version None)
Quarter: 2009Q4

REPORT INFORMATION
  Report Type: 
  Country: None (occurrence: None)
  Receive Date: 20091203
  Receipt Date: 20091124
  Transmission Date: 20100525
  Serious: Yes (Hospitalization)
  Sender: FDA-Public Use
  Company Number: B0607509A

PATIENT
  Sex: Male

DRUGS (1)
  1. AUGMENTIN '125' [Suspect]
     Indication: INFECTION
     Dosage: 2G UNKNOWN
     Route: 042
     Dates: start: 20091008, end: 20091008

REACTIONS (5)
  - ACUTE CORONARY SYNDROME [None]
  - ALTERED STATE OF CONSCIOUSNESS [None]
  - ANAPHYLACTOID SHOCK [None]
  - HYPOTENSION [None]
  - OXYGEN SATURATION DECREASED [None]
